FAERS Safety Report 10290843 (Version 2)
Quarter: 2014Q3

REPORT INFORMATION
  Report Type: Spontaneous
  Country: NL (occurrence: NL)
  Receive Date: 20140710
  Receipt Date: 20140723
  Transmission Date: 20150326
  Serious: Yes (Other)
  Sender: FDA-Public Use
  Company Number: NL-TEVA-492401ISR

PATIENT
  Age: 65 Year
  Sex: Male
  Weight: 80 kg

DRUGS (7)
  1. RIBOFLAVINE [Suspect]
     Active Substance: RIBOFLAVIN
     Indication: PROPHYLAXIS
     Dosage: 1 TIME PER DAY 1 PIECE (S)
     Route: 048
     Dates: start: 20130525, end: 20140513
  2. ASCORBIC ACID. [Suspect]
     Active Substance: ASCORBIC ACID
     Indication: PROPHYLAXIS
     Dosage: 100 MILLIGRAM DAILY; 1 TIME PER DAY 1 PIECE (S)
     Route: 048
     Dates: start: 20130525, end: 20140513
  3. THIAMINE HYDROCHLORIDE. [Suspect]
     Active Substance: THIAMINE HYDROCHLORIDE
     Indication: PROPHYLAXIS
     Dosage: 3 MILLIGRAM DAILY; 1 TIME PER DAY 1 PIECE (S)
     Route: 048
     Dates: start: 20130525, end: 20140513
  4. FOLIC ACID. [Suspect]
     Active Substance: FOLIC ACID
     Indication: PROPHYLAXIS
     Dosage: 1 TIME PER DAY 1 PIECE (S)
     Route: 048
     Dates: start: 20130525, end: 20140513
  5. NIACINE TABLET [Suspect]
     Active Substance: NIACIN
     Indication: PROPHYLAXIS
     Dosage: 1 TIME PER DAY 1 PIECE (S)
     Route: 048
     Dates: start: 20130525, end: 20140513
  6. PYRIDOXINE [Suspect]
     Active Substance: PYRIDOXINE
     Indication: PROPHYLAXIS
     Dosage: 22.5 MILLIGRAM DAILY; 1 TIME PER DAY 1 PIECE (S) ADDITIONAL INFO: 22.5 MG
     Route: 048
     Dates: start: 20130525, end: 20140513
  7. PANTOTHEENZUUR [Suspect]
     Active Substance: PANTOTHENIC ACID
     Indication: PROPHYLAXIS
     Dosage: 1 TIME PER DAY 1 PIECE (S)
     Route: 048
     Dates: start: 20130525, end: 20140513

REACTIONS (1)
  - Polyneuropathy [Recovering/Resolving]

NARRATIVE: CASE EVENT DATE: 20131201
